FAERS Safety Report 17774958 (Version 1)
Quarter: 2020Q2

REPORT INFORMATION
  Report Type: Spontaneous
  Country: US (occurrence: US)
  Receive Date: 20200512
  Receipt Date: 20200512
  Transmission Date: 20200714
  Serious: Yes (Disabling, Other)
  Sender: FDA-Public Use
  Company Number: None

PATIENT
  Age: 68 Year
  Sex: Male
  Weight: 94.5 kg

DRUGS (9)
  1. VITAMIN D3 WITH CALCIUM [Concomitant]
  2. TYLENOL [Concomitant]
     Active Substance: ACETAMINOPHEN
  3. ALPHA LIPOIC ACID [Concomitant]
     Active Substance: .ALPHA.-LIPOIC ACID
  4. QUERCETIN HYDRATE [Suspect]
     Active Substance: QUERCETIN
     Indication: PNEUMONITIS
     Dosage: ?          QUANTITY:1 CAPSULE(S);?
     Route: 048
     Dates: start: 20200501, end: 20200512
  5. ZINC. [Concomitant]
     Active Substance: ZINC
  6. COENZYME Q10 [Concomitant]
     Active Substance: UBIDECARENONE
  7. DICLOFENAC SODIUM. [Concomitant]
     Active Substance: DICLOFENAC SODIUM
  8. VITAMIN C [Concomitant]
     Active Substance: ASCORBIC ACID
  9. ASPIRIN. [Concomitant]
     Active Substance: ASPIRIN

REACTIONS (6)
  - Respiratory distress [None]
  - Joint swelling [None]
  - Diarrhoea [None]
  - Influenza like illness [None]
  - Peripheral swelling [None]
  - Suspected COVID-19 [None]

NARRATIVE: CASE EVENT DATE: 20200509
